FAERS Safety Report 7154307-8 (Version None)
Quarter: 2010Q4

REPORT INFORMATION
  Report Type: 
  Country: None (occurrence: None)
  Receive Date: 20101213
  Receipt Date: 20101130
  Transmission Date: 20110411
  Serious: Yes (Hospitalization)
  Sender: FDA-Public Use
  Company Number: DE-WATSON-2010-15739

PATIENT
  Age: 46 Year
  Sex: Male

DRUGS (1)
  1. COLCHICINE (WATSON LABORATORIES) [Suspect]
     Indication: SUICIDE ATTEMPT
     Dosage: 37.5 MG, SINGLE
     Route: 048

REACTIONS (10)
  - ALOPECIA [None]
  - CARDIAC FAILURE [None]
  - GASTROENTERITIS [None]
  - HYPOCALCAEMIA [None]
  - HYPOPHOSPHATAEMIA [None]
  - INTENTIONAL OVERDOSE [None]
  - LEUKOCYTOSIS [None]
  - POLYNEUROPATHY [None]
  - THROMBOCYTOPENIA [None]
  - TRANSAMINASES INCREASED [None]
